FAERS Safety Report 18247403 (Version 1)
Quarter: 2020Q3

REPORT INFORMATION
  Report Type: Spontaneous
  Country: US (occurrence: US)
  Receive Date: 20200909
  Receipt Date: 20200909
  Transmission Date: 20201103
  Serious: Yes (Death, Other)
  Sender: FDA-Public Use
  Company Number: US-APOTEX-2020AP017505

PATIENT
  Age: 78 Year
  Sex: Male

DRUGS (1)
  1. IMATINIB. [Suspect]
     Active Substance: IMATINIB MESYLATE
     Indication: LEUKAEMIA
     Dosage: 1 DOSAGE FORM, QD
     Route: 065
     Dates: start: 201811, end: 20200617

REACTIONS (1)
  - Death [Fatal]

NARRATIVE: CASE EVENT DATE: 20200822
